FAERS Safety Report 4875584-X (Version None)
Quarter: 2006Q1

REPORT INFORMATION
  Report Type: 
  Country: None (occurrence: None)
  Receive Date: 20060105
  Receipt Date: 20051227
  Transmission Date: 20060701
  Serious: Yes (Disabling, Congenital Anomaly, Other)
  Sender: FDA-Public Use
  Company Number: 2005-BP-21897RO

PATIENT
  Sex: Male
  Weight: 3.08 kg

DRUGS (1)
  1. ZIDOVUDINE [Suspect]
     Indication: PROPHYLAXIS AGAINST HIV INFECTION
     Dosage: SEE TEXT

REACTIONS (19)
  - ANAEMIA NEONATAL [None]
  - BIOPSY MUSCLE ABNORMAL [None]
  - CAESAREAN SECTION [None]
  - CONGENITAL CENTRAL NERVOUS SYSTEM ANOMALY [None]
  - CONGENITAL NEUROLOGICAL DEGENERATION [None]
  - DEVELOPMENTAL DELAY [None]
  - DRUG EXPOSURE DURING PREGNANCY [None]
  - ERYTHROPOIESIS ABNORMAL [None]
  - EYE MOVEMENT DISORDER [None]
  - HYPERLACTACIDAEMIA [None]
  - HYPOTONIA NEONATAL [None]
  - INFANTILE APNOEIC ATTACK [None]
  - MITOCHONDRIAL CYTOPATHY [None]
  - MITOCHONDRIAL DNA DELETION [None]
  - MOTOR DYSFUNCTION [None]
  - NEONATAL TACHYPNOEA [None]
  - NEURODEGENERATIVE DISORDER [None]
  - PALLOR [None]
  - VISUAL DISTURBANCE [None]
